FAERS Safety Report 4683205-4 (Version None)
Quarter: 2005Q2

REPORT INFORMATION
  Report Type: 
  Country: None (occurrence: None)
  Receive Date: 20050602
  Receipt Date: 20050201
  Transmission Date: 20051028
  Serious: No
  Sender: FDA-Public Use
  Company Number: USA050289690

PATIENT
  Age: 46 Year
  Sex: Male

DRUGS (2)
  1. CYMBALTA [Suspect]
     Indication: DEPRESSION
     Dosage: 60 MG
     Dates: start: 20041201
  2. FLUOXETINE [Concomitant]

REACTIONS (8)
  - CRYING [None]
  - DEPRESSION [None]
  - FEELING ABNORMAL [None]
  - FEELING JITTERY [None]
  - NERVOUSNESS [None]
  - OBSESSIVE-COMPULSIVE DISORDER [None]
  - PANIC ATTACK [None]
  - TENSION [None]
